FAERS Safety Report 4349689-6 (Version None)
Quarter: 2004Q2

REPORT INFORMATION
  Report Type: 
  Country: None (occurrence: None)
  Receive Date: 20040426
  Receipt Date: 20031023
  Transmission Date: 20050107
  Serious: Yes (Death, Hospitalization, Other)
  Sender: FDA-Public Use
  Company Number: 2003041632

PATIENT
  Sex: Male

DRUGS (3)
  1. ZITHROMAX [Suspect]
     Indication: LARYNGITIS
     Dosage: ORAL
     Route: 048
     Dates: start: 20030523, end: 20030523
  2. ROBITUSSIN-DM (ETHANOL, GUAIFENESIN, DEXTROMETHORPHAN HYDROBROMIDE) [Concomitant]
  3. SALBUTAMOL (SALBUTAMOL) [Concomitant]

REACTIONS (1)
  - ANAPHYLACTIC SHOCK [None]
